FAERS Safety Report 19211162 (Version 2)
Quarter: 2022Q1

REPORT INFORMATION
  Report Type: Spontaneous
  Country: VN (occurrence: VN)
  Receive Date: 20210504
  Receipt Date: 20220316
  Transmission Date: 20220424
  Serious: No
  Sender: FDA-Public Use
  Company Number: VN-NOVARTISPH-NVSC2021VN097035

PATIENT
  Sex: Male

DRUGS (6)
  1. DOCETAXEL [Suspect]
     Active Substance: DOCETAXEL
     Indication: Hypopharyngeal cancer
     Dosage: 75 MG/M275 MG/M2 SKIN, INTRAVENOUS INFUSION
     Route: 042
  2. DOCETAXEL [Suspect]
     Active Substance: DOCETAXEL
     Indication: Laryngeal cancer
  3. CISPLATIN [Suspect]
     Active Substance: CISPLATIN
     Indication: Hypopharyngeal cancer
     Dosage: 100 MG/M2 SKIN, INTRAVENOUS INFUSION
     Route: 042
  4. CISPLATIN [Suspect]
     Active Substance: CISPLATIN
     Indication: Laryngeal cancer
  5. FLUOROURACIL [Suspect]
     Active Substance: FLUOROURACIL
     Indication: Hypopharyngeal cancer
     Dosage: 1000 MG/M2 SKIN,INTRAVENOUS INFUSION
     Route: 042
  6. FLUOROURACIL [Suspect]
     Active Substance: FLUOROURACIL
     Indication: Laryngeal cancer

REACTIONS (1)
  - White blood cell count decreased [Unknown]
